FAERS Safety Report 4456946-1 (Version None)
Quarter: 2004Q3

REPORT INFORMATION
  Report Type: 
  Country: None (occurrence: None)
  Receive Date: 20040921
  Receipt Date: 20040913
  Transmission Date: 20050211
  Serious: Yes (Life-Threatening, Hospitalization)
  Sender: FDA-Public Use
  Company Number: STA-AE-04-MTX-390

PATIENT
  Age: 70 Year
  Sex: Female

DRUGS (3)
  1. RHEUMATREX [Suspect]
     Indication: RHEUMATOID ARTHRITIS
     Dosage: 4 MG 1X PER 1 WK, ORAL
     Route: 048
     Dates: start: 20040802, end: 20040809
  2. PREDNISOLONE [Concomitant]
  3. SPALT SCHMERZGEL (FELBINAC) [Concomitant]

REACTIONS (5)
  - ENTEROCOLITIS [None]
  - PLATELET COUNT DECREASED [None]
  - PYREXIA [None]
  - STOMATITIS [None]
  - WHITE BLOOD CELL COUNT DECREASED [None]
